FAERS Safety Report 9202813 (Version 2)
Quarter: 2013Q2

REPORT INFORMATION
  Report Type: Spontaneous
  Country: NL (occurrence: NL)
  Receive Date: 20130401
  Receipt Date: 20130516
  Transmission Date: 20140414
  Serious: Yes (Hospitalization)
  Sender: FDA-Public Use
  Company Number: NL-AMGEN-NLDSP2013021304

PATIENT
  Age: 37 Year
  Sex: Male

DRUGS (13)
  1. NEULASTA [Suspect]
     Indication: PRODUCT USED FOR UNKNOWN INDICATION
     Dosage: 6 MG, Q3WK
     Route: 058
  2. METOCLOPRAMIDE [Concomitant]
     Dosage: 10 MG, 1X PER DAY 1 TABLET MAXIMUM AND 4X PER DAY 1 TABLET
     Route: 048
     Dates: start: 20130302
  3. LACTULOSESTROOP [Concomitant]
     Dosage: 670 MG/ML, 3X PER DAY 15 MILILITER
     Route: 048
     Dates: start: 20130323
  4. MOVICOLON [Concomitant]
     Dosage: UNK
     Route: 048
     Dates: start: 20130312
  5. MICROLAX                           /03136201/ [Concomitant]
     Dosage: 5 ML, UNK
     Route: 054
     Dates: start: 20130323
  6. OXYNORM [Concomitant]
     Dosage: 5 MG, UNK
     Route: 048
     Dates: start: 20130316
  7. OXYCODONE [Concomitant]
     Dosage: 10 MG, UNK
     Route: 048
     Dates: start: 20130312
  8. PARACETAMOL [Concomitant]
     Dosage: 500 MG, 4X PER DAY 2 TABLETS
     Route: 048
     Dates: start: 20130316
  9. OXAZEPAM [Concomitant]
     Dosage: 10 MG, UNK
     Route: 048
     Dates: start: 20130316
  10. NORTRIPTYLINE [Concomitant]
     Dosage: 25 MG, UNK
     Route: 048
     Dates: start: 20130316
  11. PRIMPERAN [Concomitant]
     Dosage: 20 MG ZETPIL, 1X PER DAY 1 ZETPIL MAXIMUM AND 4X PER DAY 1 ZETPIL
     Route: 054
     Dates: start: 20130302, end: 20130316
  12. ZOFRAN ZYDIS [Concomitant]
     Dosage: 8 MG, 1X PER DAY 1 TABLET MAXIMUM
     Route: 048
     Dates: start: 20130302, end: 20130316
  13. TRAMADOL [Concomitant]
     Dosage: 50 MG, 3X PER DAY 1 CAPSULE
     Route: 048
     Dates: start: 20130302, end: 20130312

REACTIONS (3)
  - Tumour pain [Unknown]
  - Lip ulceration [Unknown]
  - Salivary gland pain [Unknown]
